FAERS Safety Report 24132078 (Version 1)
Quarter: 2024Q3

REPORT INFORMATION
  Report Type: Spontaneous
  Country: IT (occurrence: IT)
  Receive Date: 20240724
  Receipt Date: 20240724
  Transmission Date: 20241016
  Serious: Yes (Other)
  Sender: PFIZER
  Company Number: IT-TEVA-VS-3177492

PATIENT
  Age: 31 Year
  Sex: Male

DRUGS (9)
  1. TRIAZOLAM [Suspect]
     Active Substance: TRIAZOLAM
     Dosage: UNK
  2. VORTIOXETINE DL-LACTATE [Suspect]
     Active Substance: VORTIOXETINE DL-LACTATE
     Dosage: UNK
  3. CITALOPRAM [Suspect]
     Active Substance: CITALOPRAM\CITALOPRAM HYDROBROMIDE
     Dosage: RATIOPHARM/ HALF A TABLET AT FIRST AND THEN ONE WHOLE TABLET IN THE EVENING
  4. CITALOPRAM HYDROBROMIDE [Suspect]
     Active Substance: CITALOPRAM HYDROBROMIDE
     Dosage: UNK
  5. AMISULPRIDE [Suspect]
     Active Substance: AMISULPRIDE
     Indication: Depression
     Dosage: UNK
  6. MELATONIN [Suspect]
     Active Substance: MELATONIN
     Dosage: UNK
  7. VITAMIN D [Concomitant]
     Active Substance: VITAMIN D NOS
     Dosage: UNK
  8. TADALAFIL [Concomitant]
     Active Substance: TADALAFIL
     Dosage: 5 MG, 1X/DAY
  9. SEROTONIN [Concomitant]
     Active Substance: SEROTONIN
     Dosage: UNK

REACTIONS (2)
  - Sensory loss [Recovering/Resolving]
  - Erectile dysfunction [Recovering/Resolving]
